FAERS Safety Report 8405765-X (Version None)
Quarter: 2012Q2

REPORT INFORMATION
  Report Type: 
  Country: None (occurrence: None)
  Receive Date: 20120323
  Receipt Date: 20110113
  Transmission Date: 20120825
  Serious: Yes (Hospitalization, Other)
  Sender: FDA-Public Use
  Company Number: 163-21880-10082558

PATIENT
  Age: 70 Year
  Sex: Male

DRUGS (7)
  1. GLIPIZIDE [Concomitant]
  2. METFFORMIN HYDROCHLORIDE [Concomitant]
  3. PACKED RED BLOOD CELLS (BLOOD CELLS, PACKED HUMAN) [Concomitant]
  4. PROCRIT [Concomitant]
  5. REVLIMID [Suspect]
     Indication: MYELODYSPLASTIC SYNDROME
     Dosage: 10 MG, 1 IN 1 D, PO
     Route: 048
     Dates: start: 20100701
  6. REVLIMID [Suspect]
     Indication: MYELODYSPLASTIC SYNDROME
     Dosage: 10 MG, 1 IN 1 D, PO
     Route: 048
     Dates: start: 20100901
  7. EXJADE [Concomitant]

REACTIONS (7)
  - FATIGUE [None]
  - DYSURIA [None]
  - SINUS CONGESTION [None]
  - HYPOTENSION [None]
  - DECREASED APPETITE [None]
  - ANAEMIA [None]
  - PYREXIA [None]
